FAERS Safety Report 24893256 (Version 1)
Quarter: 2025Q1

REPORT INFORMATION
  Report Type: Spontaneous
  Country: FR (occurrence: FR)
  Receive Date: 20250128
  Receipt Date: 20250128
  Transmission Date: 20250409
  Serious: Yes (Other)
  Sender: SANOFI AVENTIS
  Company Number: None

PATIENT
  Age: 69 Year
  Sex: Male
  Weight: 55 kg

DRUGS (15)
  1. ASPIRIN [Suspect]
     Active Substance: ASPIRIN
     Dosage: 75 MG, QD (75 MG, 1 MORNING)
  2. ENOXAPARIN SODIUM [Suspect]
     Active Substance: ENOXAPARIN SODIUM
     Dosage: 2000 IU, QD (2000 IU, 1X/DAY)
  3. HEPARIN SODIUM [Suspect]
     Active Substance: HEPARIN SODIUM
     Indication: Pulmonary embolism
     Dosage: 5000 IU, QD (PSE STARTS AT 3PM, STOPPED AT 8PM THE SAME DAY)
     Route: 042
     Dates: start: 20200407, end: 20200407
  4. CLOPIDOGREL BISULFATE [Suspect]
     Active Substance: CLOPIDOGREL BISULFATE
     Dates: end: 20200327
  5. CANGRELOR [Suspect]
     Active Substance: CANGRELOR
     Dates: start: 20200406
  6. AMLODIPINE [Concomitant]
     Active Substance: AMLODIPINE BESYLATE
     Dosage: 5 MG, QD (5 MG, 1 AT LUNCHTIME)
  7. ESOMEPRAZOLE [Concomitant]
     Active Substance: ESOMEPRAZOLE
     Dosage: 20 MG, QD (20 MG, 1 IN THE EVENING)
  8. AZITHROMYCIN [Concomitant]
     Active Substance: AZITHROMYCIN
     Dosage: 250 MG, QD (250 MG, 1 MORNING)
  9. VORICONAZOLE [Concomitant]
     Active Substance: VORICONAZOLE
  10. ATORVASTATIN [Concomitant]
     Active Substance: ATORVASTATIN
     Dosage: 40 MG, QD (40 MG, 1 EVENING)
  11. FOLIC ACID [Concomitant]
     Active Substance: FOLIC ACID
     Dosage: 5 MG, QD (5 MG, 1 MORNING)
  12. PREDNISOLONE [Concomitant]
     Active Substance: PREDNISOLONE
     Dosage: 45 MG, QD (45 MG AT LUNCHTIME)
  13. ALBUTEROL [Concomitant]
     Active Substance: ALBUTEROL
  14. URAPIDIL [Concomitant]
     Active Substance: URAPIDIL
  15. DIETARY SUPPLEMENT [Concomitant]
     Active Substance: DIETARY SUPPLEMENT

REACTIONS (2)
  - Pulmonary venous hypertension [Recovered/Resolved]
  - Haemoptysis [Recovered/Resolved]

NARRATIVE: CASE EVENT DATE: 20200407
